FAERS Safety Report 16097763 (Version 2)
Quarter: 2019Q1

REPORT INFORMATION
  Report Type: Report from Study
  Country: CA (occurrence: CA)
  Receive Date: 20190320
  Receipt Date: 20190325
  Transmission Date: 20190418
  Serious: Yes (Other)
  Sender: FDA-Public Use
  Company Number: CA-BAUSCH-BL-2019-006789

PATIENT
  Age: 37 Year
  Sex: Female

DRUGS (1)
  1. SILIQ [Suspect]
     Active Substance: BRODALUMAB
     Indication: PSORIASIS
     Dosage: 210 MG/ 1.5 ML
     Route: 058
     Dates: start: 20190227, end: 20190306

REACTIONS (9)
  - Panic attack [Unknown]
  - Palpitations [Unknown]
  - Chest discomfort [Unknown]
  - Thinking abnormal [Unknown]
  - Feeling abnormal [Recovered/Resolved]
  - Tachypnoea [Unknown]
  - Hallucination, visual [Unknown]
  - Suicidal ideation [Unknown]
  - Fatigue [Unknown]

NARRATIVE: CASE EVENT DATE: 2019
